FAERS Safety Report 23178936 (Version 8)
Quarter: 2025Q2

REPORT INFORMATION
  Report Type: Spontaneous
  Country: IN (occurrence: IN)
  Receive Date: 20231113
  Receipt Date: 20250617
  Transmission Date: 20250717
  Serious: Yes (Other)
  Sender: PFIZER
  Company Number: IN-PFIZER INC-PV202200112274

PATIENT
  Age: 56 Year
  Sex: Female
  Weight: 57.8 kg

DRUGS (7)
  1. DACOMITINIB [Suspect]
     Active Substance: DACOMITINIB
     Dosage: 30 MG, 1X/DAY
     Route: 048
     Dates: start: 20220901
  2. DACOMITINIB [Suspect]
     Active Substance: DACOMITINIB
  3. ATIVAN [Concomitant]
     Active Substance: LORAZEPAM
     Indication: Sleep disorder
  4. RANITIDINE HYDROCHLORIDE [Concomitant]
     Active Substance: RANITIDINE HYDROCHLORIDE
     Dosage: 150 MG, 2X/DAY [BDAC IF REQUIRED]
  5. DOXYCYCLINE [Concomitant]
     Active Substance: DOXYCYCLINE
     Dosage: 100 MG, 1X/DAY
  6. MEGEETRON [Concomitant]
     Dosage: 160 MG, 1X/DAY
  7. SODIUM BICARBONATE [Concomitant]
     Active Substance: SODIUM BICARBONATE
     Dosage: UNK, 2X/DAY

REACTIONS (23)
  - Cerebral atrophy [Unknown]
  - Hypothyroidism [Unknown]
  - Nervous system disorder [Unknown]
  - Fall [Unknown]
  - Wound [Recovering/Resolving]
  - Nasopharyngitis [Unknown]
  - Body mass index increased [Unknown]
  - White matter lesion [Unknown]
  - Pain [Unknown]
  - Back pain [Unknown]
  - Blood pressure increased [Unknown]
  - Granuloma [Unknown]
  - Dizziness [Unknown]
  - Muscular weakness [Unknown]
  - Atelectasis [Unknown]
  - Skin disorder [Unknown]
  - Constipation [Unknown]
  - Nail disorder [Unknown]
  - Rash [Unknown]
  - Pruritus [Unknown]
  - Palmar-plantar erythrodysaesthesia syndrome [Unknown]
  - Paronychia [Unknown]
  - Diarrhoea [Unknown]

NARRATIVE: CASE EVENT DATE: 20230630
